FAERS Safety Report 11646610 (Version 2)
Quarter: 2016Q2

REPORT INFORMATION
  Report Type: Spontaneous
  Country: US (occurrence: US)
  Receive Date: 20151020
  Receipt Date: 20160429
  Transmission Date: 20160815
  Serious: No
  Sender: FDA-Public Use
  Company Number: US-ROCHE-1619371

PATIENT
  Sex: Female
  Weight: 81.72 kg

DRUGS (1)
  1. ESBRIET [Suspect]
     Active Substance: PIRFENIDONE
     Indication: IDIOPATHIC PULMONARY FIBROSIS
     Dosage: 3 CAPS PO TID, 2403MG DAILY
     Route: 048
     Dates: start: 20150519

REACTIONS (4)
  - Cough [Unknown]
  - Urinary tract infection [Unknown]
  - Pain [Unknown]
  - Fall [Unknown]
